FAERS Safety Report 13207964 (Version 5)
Quarter: 2017Q4

REPORT INFORMATION
  Report Type: Report from Study
  Country: US (occurrence: US)
  Receive Date: 20170209
  Receipt Date: 20171103
  Transmission Date: 20180320
  Serious: Yes (Hospitalization)
  Sender: FDA-Public Use
  Company Number: US-SA-2016SA089400

PATIENT
  Age: 38 Year
  Sex: Female
  Weight: 54.43 kg

DRUGS (1)
  1. LEMTRADA [Suspect]
     Active Substance: ALEMTUZUMAB
     Indication: MULTIPLE SCLEROSIS
     Route: 041
     Dates: start: 20160418, end: 20160422

REACTIONS (11)
  - Petechiae [Unknown]
  - Anaemia [Recovering/Resolving]
  - Menorrhagia [Recovering/Resolving]
  - Oral contusion [Recovering/Resolving]
  - Platelet count decreased [Recovering/Resolving]
  - Rash [Not Recovered/Not Resolved]
  - Immune thrombocytopenic purpura [Recovering/Resolving]
  - Oral mucosal blistering [Recovering/Resolving]
  - Lip dry [Not Recovered/Not Resolved]
  - Weight increased [Unknown]
  - Contusion [Recovering/Resolving]

NARRATIVE: CASE EVENT DATE: 2016
